FAERS Safety Report 6488295-4 (Version None)
Quarter: 2009Q4

REPORT INFORMATION
  Report Type: 
  Country: None (occurrence: None)
  Receive Date: 20091123
  Receipt Date: 20091014
  Transmission Date: 20100525
  Serious: No
  Sender: FDA-Public Use
  Company Number: 8053276

PATIENT
  Age: 64 Year
  Sex: Female
  Weight: 111.1 kg

DRUGS (12)
  1. CIMZIA [Suspect]
     Indication: RHEUMATOID ARTHRITIS
     Dosage: 400 MG 1/2W SC
     Route: 058
     Dates: start: 20091011
  2. ACIPHEX [Concomitant]
  3. ASPIRIN [Concomitant]
  4. BUSPIRONE HCL [Concomitant]
  5. CLONAZEPAM [Concomitant]
  6. CRANBERRY CONCENTRATE EXTRACT [Concomitant]
  7. TOPRAL [Concomitant]
  8. ESTRADIOL [Concomitant]
  9. LEXAPRO [Concomitant]
  10. DYAZIDE [Concomitant]
  11. HYDROCHLOROTHIAZIDE [Concomitant]
  12. FLECAINIDE ACETATE [Concomitant]

REACTIONS (1)
  - INJECTION SITE REACTION [None]
